FAERS Safety Report 8146469-0 (Version None)
Quarter: 2012Q1

REPORT INFORMATION
  Report Type: 
  Country: None (occurrence: None)
  Receive Date: 20120217
  Receipt Date: 20111102
  Transmission Date: 20120608
  Serious: No
  Sender: FDA-Public Use
  Company Number: US-ABBOTT-11P-163-0871075-00

PATIENT
  Sex: Female
  Weight: 64.014 kg

DRUGS (5)
  1. VASOTEC [Concomitant]
     Indication: HYPERTENSION
  2. SIMCOR [Suspect]
     Indication: BLOOD CHOLESTEROL INCREASED
     Dates: start: 20100101
  3. NORVASC [Concomitant]
     Indication: HYPERTENSION
  4. NEURONTIN [Concomitant]
     Indication: NEURALGIA
  5. PRILOSEC [Concomitant]
     Indication: GASTROOESOPHAGEAL REFLUX DISEASE

REACTIONS (3)
  - OEDEMA PERIPHERAL [None]
  - GOUT [None]
  - ERYTHEMA [None]
